FAERS Safety Report 6190913-5 (Version None)
Quarter: 2009Q2

REPORT INFORMATION
  Report Type: 
  Country: None (occurrence: None)
  Receive Date: 20090513
  Receipt Date: 20090429
  Transmission Date: 20091009
  Serious: Yes (Hospitalization)
  Sender: FDA-Public Use
  Company Number: UKP09000091

PATIENT
  Age: 83 Year
  Sex: Male

DRUGS (8)
  1. ACTONEL [Suspect]
     Indication: OSTEOPOROSIS
     Dosage: 35 MG, 1 /WEEK, ORAL
     Route: 048
     Dates: start: 20090331
  2. CALCIUM + VITAMIN D (CALCIUM, COLECALCIFEROL) UNKNOWN [Concomitant]
  3. FERROUS SULPHATE /00023503/ (FERROUS SULFATE) UNKNOWN [Concomitant]
  4. FUROSEMIDE (FUROSEMIDE) UNKNOWN [Concomitant]
  5. HYPROMELLOSE (HYPROMELLOSE) UNKNOWN [Concomitant]
  6. LANSOPRAZOLE [Concomitant]
  7. PREDNISOLONE [Concomitant]
  8. WARFARIN SODIUM [Concomitant]

REACTIONS (2)
  - DYSPNOEA [None]
  - LIP SWELLING [None]
